FAERS Safety Report 24199345 (Version 1)
Quarter: 2024Q3

REPORT INFORMATION
  Report Type: Spontaneous
  Country: AU (occurrence: AU)
  Receive Date: 20240812
  Receipt Date: 20240812
  Transmission Date: 20241016
  Serious: Yes (Other)
  Sender: AMGEN
  Company Number: AU-AMGEN-AUSSP2024156499

PATIENT
  Age: 75 Year
  Sex: Female

DRUGS (2)
  1. PROLIA [Suspect]
     Active Substance: DENOSUMAB
     Indication: Osteoporosis
     Dosage: UNK
     Route: 065
  2. Calcium supplement with vitamin d [Concomitant]
     Dosage: 61 NMOL/L

REACTIONS (6)
  - Lumbar vertebral fracture [Unknown]
  - Thoracic vertebral fracture [Unknown]
  - Rib fracture [Unknown]
  - Spinal osteoarthritis [Unknown]
  - Dental implantation [Unknown]
  - Fall [Unknown]

NARRATIVE: CASE EVENT DATE: 20190101
